FAERS Safety Report 8357353 (Version 2)
Quarter: 2012Q4

REPORT INFORMATION
  Report Type: Report from Study
  Country: DE (occurrence: DE)
  Receive Date: 20120127
  Receipt Date: 20120910
  Transmission Date: 20130627
  Serious: Yes (Hospitalization, Other)
  Sender: FDA-Public Use
  Company Number: DE-ABBOTT-11P-062-0886134-00

PATIENT
  Age: 59 None
  Sex: Male

DRUGS (4)
  1. HUMIRA 40 MG/ 0.8 ML PRE-FILLED SYRINGE [Suspect]
     Indication: CROHN^S DISEASE
     Route: 058
     Dates: start: 20110906, end: 20111219
  2. VELMETIA [Concomitant]
     Indication: DIABETES MELLITUS
     Dosage: once daily
  3. CORTISONE [Concomitant]
     Indication: PRODUCT USED FOR UNKNOWN INDICATION
  4. ANTI-INFLAMMATORY [Concomitant]
     Indication: PRODUCT USED FOR UNKNOWN INDICATION

REACTIONS (6)
  - Gastrointestinal inflammation [Unknown]
  - Diarrhoea [Not Recovered/Not Resolved]
  - Ureteritis [Not Recovered/Not Resolved]
  - Decreased appetite [Recovering/Resolving]
  - Weight decreased [Recovering/Resolving]
  - Malaise [Unknown]
